FAERS Safety Report 4749735-1 (Version None)
Quarter: 2005Q3

REPORT INFORMATION
  Report Type: 
  Country: None (occurrence: None)
  Receive Date: 20050822
  Receipt Date: 19980903
  Transmission Date: 20060218
  Serious: Yes (Hospitalization)
  Sender: FDA-Public Use
  Company Number: JP-MERCK-98090622

PATIENT
  Age: 2 Year
  Sex: Female
  Weight: 14 kg

DRUGS (3)
  1. COSMEGEN [Suspect]
     Indication: RHABDOMYOSARCOMA
     Route: 042
     Dates: start: 19970401, end: 19970405
  2. ONCOVIN [Concomitant]
     Indication: RHABDOMYOSARCOMA
     Route: 042
     Dates: start: 19970401
  3. ENDOXAN [Concomitant]
     Route: 041
     Dates: start: 19970401, end: 19970403

REACTIONS (1)
  - HAEMOLYTIC ANAEMIA [None]
